FAERS Safety Report 6613275-5 (Version None)
Quarter: 2010Q1

REPORT INFORMATION
  Report Type: 
  Country: None (occurrence: None)
  Receive Date: 20100225
  Receipt Date: 20100209
  Transmission Date: 20100710
  Serious: Yes (Hospitalization)
  Sender: FDA-Public Use
  Company Number: 1000008488

PATIENT
  Age: 86 Year
  Sex: Female
  Weight: 46 kg

DRUGS (9)
  1. MEMANTINE HCL [Suspect]
     Indication: DEMENTIA ALZHEIMER'S TYPE
     Dosage: 20 MG (20 MG, 1 IN 1 D), ORAL
     Route: 048
     Dates: start: 20061111, end: 20090728
  2. ALFACALCIDOL [Concomitant]
  3. IRSOGLADINE MALEATE [Concomitant]
  4. ASPIRIN_DIALUMINATE [Concomitant]
  5. TIAPRIDE HYDROCHLORIDE [Concomitant]
  6. AMLODIPINE BESYLATE [Concomitant]
  7. ENALAPRIL MALEATE [Concomitant]
  8. MAGNESIUM OXIDE [Concomitant]
  9. KETOPROFEN [Concomitant]

REACTIONS (2)
  - INTERSTITIAL LUNG DISEASE [None]
  - LYMPHOCYTE STIMULATION TEST POSITIVE [None]
